FAERS Safety Report 24147950 (Version 1)
Quarter: 2024Q3

REPORT INFORMATION
  Report Type: Spontaneous
  Country: FI (occurrence: FI)
  Receive Date: 20240729
  Receipt Date: 20240729
  Transmission Date: 20241017
  Serious: Yes (Hospitalization)
  Sender: FRESENIUS KABI
  Company Number: None

PATIENT
  Age: 78 Year
  Sex: Female

DRUGS (5)
  1. PACLITAXEL [Suspect]
     Active Substance: PACLITAXEL
     Indication: Anaplastic thyroid cancer
     Dosage: 75 MG (SECOND INFUSION)?ROUTE: INTRAVENOUS?FORM: CONCENTRATE FOR SOLUTION FOR INFUSION
     Dates: start: 20231213, end: 20231213
  2. PACLITAXEL [Suspect]
     Active Substance: PACLITAXEL
     Dosage: 75 MG (FIRST INFUSION)?ROUTE: INTRAVENOUS?FORM: CONCENTRATE FOR SOLUTION FOR INFUSION
     Dates: start: 20231129, end: 20231129
  3. CIPRALEX [Concomitant]
     Active Substance: ESCITALOPRAM OXALATE
     Indication: Depression
     Dosage: 10 MG X 1?FOA: FILM-COATED TABLET
     Dates: start: 20231118
  4. PANTOPRAZOLE SODIUM [Concomitant]
     Active Substance: PANTOPRAZOLE SODIUM
     Indication: Prophylaxis against gastrointestinal ulcer
     Dosage: 40 MG X 1?FOA: GASTRO-RESISTANT TABLET
     Route: 048
     Dates: start: 20230622
  5. LEVOTHYROXINE [Concomitant]
     Active Substance: LEVOTHYROXINE\LEVOTHYROXINE SODIUM
     Indication: Hypothyroidism
     Dosage: 100 MICROGRAMS X 1?FOA: TABLET
     Route: 057
     Dates: start: 20231009

REACTIONS (3)
  - Anaphylactic reaction [Recovered/Resolved]
  - Pulse absent [Recovered/Resolved]
  - Resuscitation [Recovered/Resolved]

NARRATIVE: CASE EVENT DATE: 20231213
